FAERS Safety Report 24153716 (Version 1)
Quarter: 2024Q3

REPORT INFORMATION
  Report Type: Spontaneous
  Country: VN (occurrence: VN)
  Receive Date: 20240730
  Receipt Date: 20240730
  Transmission Date: 20241016
  Serious: Yes (Life-Threatening, Hospitalization, Other)
  Sender: CMP PHARMA
  Company Number: VN-CMP PHARMA-2024CMP00043

PATIENT
  Age: 64 Year
  Sex: Male

DRUGS (4)
  1. AMLODIPINE [Suspect]
     Active Substance: AMLODIPINE BESYLATE
     Indication: Essential hypertension
     Dosage: 1 TABLETS, 1X/DAY
  2. AMLODIPINE [Suspect]
     Active Substance: AMLODIPINE BESYLATE
     Dosage: 3-4 TABLETS DAILY
  3. ATENOLOL [Suspect]
     Active Substance: ATENOLOL
     Indication: Essential hypertension
     Dosage: 1 TABLETS, 1X/DAY
  4. ATENOLOL [Suspect]
     Active Substance: ATENOLOL
     Dosage: 3-4 TABLETS DAILY

REACTIONS (8)
  - Metabolic acidosis [Recovered/Resolved]
  - Bradycardia [Recovered/Resolved]
  - Acute kidney injury [Recovered/Resolved]
  - Cardiac contractility decreased [Recovered/Resolved]
  - Shock [Recovered/Resolved]
  - Hypotension [Recovered/Resolved]
  - Overdose [Recovered/Resolved]
  - Pulmonary oedema [Recovered/Resolved]
